FAERS Safety Report 16901864 (Version 1)
Quarter: 2019Q4

REPORT INFORMATION
  Report Type: Spontaneous
  Country: CN (occurrence: CN)
  Receive Date: 20191010
  Receipt Date: 20191010
  Transmission Date: 20200122
  Serious: Yes (Other)
  Sender: FDA-Public Use
  Company Number: CN-DRREDDYS-GPV/CHN/19/0114606

PATIENT
  Age: 41 Year
  Sex: Female
  Weight: 57 kg

DRUGS (2)
  1. OLANZAPINE. [Suspect]
     Active Substance: OLANZAPINE
     Route: 048
     Dates: end: 20190918
  2. OLANZAPINE. [Suspect]
     Active Substance: OLANZAPINE
     Indication: PSYCHOTIC DISORDER
     Route: 048
     Dates: start: 20180308

REACTIONS (1)
  - Arrhythmia supraventricular [Recovered/Resolved]

NARRATIVE: CASE EVENT DATE: 20190830
